FAERS Safety Report 24377202 (Version 1)
Quarter: 2024Q3

REPORT INFORMATION
  Report Type: Spontaneous
  Country: US (occurrence: US)
  Receive Date: 20240930
  Receipt Date: 20240930
  Transmission Date: 20241017
  Serious: No
  Sender: AMGEN
  Company Number: US-AMGEN-USASP2024192171

PATIENT
  Age: 52 Year
  Sex: Female
  Weight: 82.64 kg

DRUGS (1)
  1. XGEVA [Suspect]
     Active Substance: DENOSUMAB
     Indication: Breast cancer metastatic
     Dosage: ( DOSE ORDERED: 120 MG,  DOSE REQUESTED: 120MG)
     Route: 065

REACTIONS (1)
  - Device use error [Unknown]
